FAERS Safety Report 10880161 (Version 1)
Quarter: 2015Q1

REPORT INFORMATION
  Report Type: Spontaneous
  Country: US (occurrence: US)
  Receive Date: 20150302
  Receipt Date: 20150302
  Transmission Date: 20150721
  Serious: No
  Sender: FDA-Public Use
  Company Number: US-PFIZER INC-2015071117

PATIENT

DRUGS (1)
  1. TORISEL [Suspect]
     Active Substance: TEMSIROLIMUS
     Dosage: 25 MG, WEEKLY

REACTIONS (1)
  - Blood creatinine increased [Unknown]
